FAERS Safety Report 5495932-X (Version None)
Quarter: 2007Q4

REPORT INFORMATION
  Report Type: 
  Country: None (occurrence: None)
  Receive Date: 20071025
  Receipt Date: 20061227
  Transmission Date: 20080405
  Serious: No
  Sender: FDA-Public Use
  Company Number: A0632638A

PATIENT
  Age: 49 Year
  Sex: Female

DRUGS (7)
  1. ADVAIR DISKUS 100/50 [Suspect]
     Indication: ASTHMA
     Dosage: 1PUFF TWICE PER DAY
     Route: 055
     Dates: start: 20040101
  2. THYROID TAB [Concomitant]
  3. TYLENOL (CAPLET) [Concomitant]
  4. GLUCOSAMINE + CHONDROITIN [Concomitant]
  5. ANTIBIOTICS [Concomitant]
  6. ALBUTEROL [Concomitant]
  7. CARDIAC DRUG [Concomitant]

REACTIONS (4)
  - COUGH [None]
  - HYPERSENSITIVITY [None]
  - NASAL OEDEMA [None]
  - THROAT TIGHTNESS [None]
